FAERS Safety Report 4806393-5 (Version None)
Quarter: 2005Q4

REPORT INFORMATION
  Report Type: 
  Country: None (occurrence: None)
  Receive Date: 20051019
  Receipt Date: 20051009
  Transmission Date: 20060501
  Serious: Yes (Hospitalization)
  Sender: FDA-Public Use
  Company Number: 234038K05USA

PATIENT
  Age: 57 Year
  Sex: Female

DRUGS (13)
  1. REBIF [Suspect]
     Indication: MULTIPLE SCLEROSIS
     Dosage: SEE IMAGE
     Route: 058
     Dates: start: 20050710, end: 20050101
  2. REBIF [Suspect]
     Indication: MULTIPLE SCLEROSIS
     Dosage: SEE IMAGE
     Route: 058
     Dates: start: 20050101, end: 20050801
  3. REBIF [Suspect]
     Indication: MULTIPLE SCLEROSIS
     Dosage: SEE IMAGE
     Route: 058
     Dates: start: 20051010
  4. CLONAPIN (CLONAZEPAM) [Concomitant]
  5. LITHIUM (LITHIUM) [Concomitant]
  6. NEURONTIN [Concomitant]
  7. ZOLOFT [Concomitant]
  8. NEXIUM [Concomitant]
  9. ZANTAC [Concomitant]
  10. POTASSIUM (POTASSIUM) [Concomitant]
  11. TYLENOL (COTYLENOL) [Concomitant]
  12. MOTRIN [Concomitant]
  13. VICODIN [Concomitant]

REACTIONS (6)
  - ASTHENIA [None]
  - INTESTINAL OBSTRUCTION [None]
  - PARASITIC INFECTION INTESTINAL [None]
  - PNEUMONIA [None]
  - PYREXIA [None]
  - WHITE BLOOD CELL COUNT INCREASED [None]
